FAERS Safety Report 5218499-X (Version None)
Quarter: 2007Q1

REPORT INFORMATION
  Report Type: 
  Country: None (occurrence: None)
  Receive Date: 20070122
  Receipt Date: 20070105
  Transmission Date: 20070707
  Serious: Yes (Other)
  Sender: FDA-Public Use
  Company Number: 234959

PATIENT
  Sex: Male
  Weight: 1.4 kg

DRUGS (7)
  1. HERCEPTIN [Suspect]
     Indication: BREAST CANCER METASTATIC
  2. PACLITAXEL [Concomitant]
  3. HYDROMORPHONE (HYDROMORPHONE HYDROCHLORIDE) [Concomitant]
  4. CYCLOPHOSPHAMIDE [Concomitant]
  5. METHOTREXATE [Concomitant]
  6. FLUOROURACIL [Concomitant]
  7. TAMOXIFEN CITRATE [Concomitant]

REACTIONS (10)
  - BACTERIAL SEPSIS [None]
  - CAESAREAN SECTION [None]
  - DRUG EXPOSURE DURING PREGNANCY [None]
  - KIDNEY MALFORMATION [None]
  - NEONATAL HYPOTENSION [None]
  - NEONATAL RESPIRATORY FAILURE [None]
  - PREMATURE BABY [None]
  - RENAL FAILURE [None]
  - RENAL FUNCTION TEST ABNORMAL [None]
  - SEPSIS NEONATAL [None]
